FAERS Safety Report 8114606-X (Version None)
Quarter: 2012Q1

REPORT INFORMATION
  Report Type: 
  Country: None (occurrence: None)
  Receive Date: 20120206
  Receipt Date: 20120202
  Transmission Date: 20120608
  Serious: Yes (Hospitalization)
  Sender: FDA-Public Use
  Company Number: US-PFIZER INC-2012029635

PATIENT
  Sex: Male
  Weight: 72.562 kg

DRUGS (6)
  1. WARFARIN [Concomitant]
     Dosage: UNK
  2. METOPROLOL [Concomitant]
     Dosage: 25 MG, UNK
  3. DIGOXIN [Concomitant]
     Dosage: 125 MG, 1X/DAY
  4. LIPITOR [Suspect]
     Indication: BLOOD CHOLESTEROL INCREASED
     Dosage: 40 MG, 1X/DAY
     Route: 048
  5. PACERONE [Concomitant]
     Dosage: 200 MG, 1X/DAY
  6. ACETYLSALICYLIC ACID [Concomitant]
     Dosage: 81 MG, UNK

REACTIONS (2)
  - CORONARY ARTERY OCCLUSION [None]
  - PROSTATIC DISORDER [None]
